FAERS Safety Report 24406692 (Version 1)
Quarter: 2024Q4

REPORT INFORMATION
  Report Type: Spontaneous
  Country: US (occurrence: US)
  Receive Date: 20241007
  Receipt Date: 20241007
  Transmission Date: 20250115
  Serious: No
  Sender: ELI LILLY AND CO
  Company Number: US-ELI_LILLY_AND_COMPANY-US202410000767

PATIENT
  Age: 65 Year
  Sex: Female

DRUGS (1)
  1. TALTZ [Suspect]
     Active Substance: IXEKIZUMAB
     Indication: Product used for unknown indication
     Dosage: UNK UNK, UNKNOWN
     Route: 065
     Dates: start: 202405

REACTIONS (8)
  - Dyspepsia [Unknown]
  - Dysphagia [Unknown]
  - Pharyngeal inflammation [Unknown]
  - Pharyngeal erythema [Unknown]
  - Glossitis [Unknown]
  - Tongue erythema [Unknown]
  - Dry mouth [Unknown]
  - Oral pain [Unknown]
